FAERS Safety Report 5495921-5 (Version None)
Quarter: 2007Q4

REPORT INFORMATION
  Report Type: 
  Country: None (occurrence: None)
  Receive Date: 20071025
  Receipt Date: 20061114
  Transmission Date: 20080405
  Serious: No
  Sender: FDA-Public Use
  Company Number: A0627469A

PATIENT
  Age: 44 Year
  Sex: Male

DRUGS (8)
  1. ADVAIR DISKUS 100/50 [Suspect]
     Indication: ASTHMA
     Dosage: 1PUFF TWICE PER DAY
     Route: 055
     Dates: start: 20060901
  2. ZYPREXA [Concomitant]
  3. TRILEPTAL [Concomitant]
  4. ATIVAN [Concomitant]
  5. BENAZEPRIL HYDROCHLORIDE [Concomitant]
  6. HYDROCHLOROTHIAZIDE [Concomitant]
  7. ALBUTEROL [Concomitant]
  8. NASONEX [Concomitant]

REACTIONS (5)
  - CHEST DISCOMFORT [None]
  - CHEST PAIN [None]
  - DRUG INEFFECTIVE [None]
  - HEART RATE INCREASED [None]
  - STOMATITIS [None]
